FAERS Safety Report 8579683-0 (Version None)
Quarter: 2012Q3

REPORT INFORMATION
  Report Type: 
  Country: None (occurrence: None)
  Receive Date: 20120808
  Receipt Date: 20120802
  Transmission Date: 20120928
  Serious: Yes (Other)
  Sender: FDA-Public Use
  Company Number: US-TEVA-351648USA

PATIENT
  Sex: Female
  Weight: 113.5 kg

DRUGS (4)
  1. ALPRAZOLAM [Concomitant]
  2. COPAXONE [Suspect]
     Indication: MULTIPLE SCLEROSIS
     Dosage: 20 MILLIGRAM DAILY;
     Route: 058
  3. CYMBALTA [Concomitant]
  4. VITAMIN D [Concomitant]

REACTIONS (2)
  - PHARYNGEAL OEDEMA [None]
  - PALPITATIONS [None]
